FAERS Safety Report 7752529-6 (Version None)
Quarter: 2011Q3

REPORT INFORMATION
  Report Type: 
  Country: None (occurrence: None)
  Receive Date: 20110915
  Receipt Date: 20110906
  Transmission Date: 20111222
  Serious: Yes (Hospitalization)
  Sender: FDA-Public Use
  Company Number: GB-MILLENNIUM PHARMACEUTICALS, INC.-2007-02490

PATIENT

DRUGS (19)
  1. ASCORBIC ACID [Concomitant]
     Indication: PRODUCT USED FOR UNKNOWN INDICATION
  2. FUROSEMIDE [Concomitant]
  3. ORAMORPH SR [Concomitant]
  4. BECLOMETHASONE AQUEOUS [Concomitant]
  5. OMEPRAZOLE [Concomitant]
  6. AMITRIPTYLINE HCL [Concomitant]
  7. LACTULOSE [Concomitant]
  8. MEBEVERINE HYDROCHLORIDE [Concomitant]
  9. PRIMROSE OIL [Concomitant]
  10. ASPIRIN [Concomitant]
  11. IDARUBICIN HCL [Suspect]
     Indication: MULTIPLE MYELOMA
     Dosage: 5 MG/M2, UNK
     Route: 048
     Dates: start: 20070525
  12. MULTI-VITAMINS [Concomitant]
     Indication: PRODUCT USED FOR UNKNOWN INDICATION
  13. LORATADINE [Concomitant]
  14. COD-LIVER OIL [Concomitant]
  15. ALBUTEROL [Concomitant]
  16. FLUOXETINE [Concomitant]
  17. VELCADE [Suspect]
     Indication: MULTIPLE MYELOMA
     Dosage: 1.30 MG/M2, UNK
     Route: 042
     Dates: start: 20070522
  18. MELPHALAN [Suspect]
     Indication: MULTIPLE MYELOMA
     Dosage: 15 MG/M2, UNK
     Route: 042
     Dates: start: 20070525
  19. MORPHINE SULFATE [Concomitant]

REACTIONS (2)
  - INFECTIVE EXACERBATION OF CHRONIC OBSTRUCTIVE AIRWAYS DISEASE [None]
  - NEUTROPENIC SEPSIS [None]
